FAERS Safety Report 11026366 (Version 3)
Quarter: 2016Q1

REPORT INFORMATION
  Report Type: Spontaneous
  Country: JP (occurrence: JP)
  Receive Date: 20150414
  Receipt Date: 20160321
  Transmission Date: 20160525
  Serious: Yes (Death, Life-Threatening, Hospitalization)
  Sender: FDA-Public Use
  Company Number: JP-SA-2015SA045661

PATIENT
  Age: 68 Year
  Sex: Female
  Weight: 48 kg

DRUGS (29)
  1. ATROPINE. [Concomitant]
     Active Substance: ATROPINE
     Dates: start: 20150316, end: 20150316
  2. MAXIPIME [Concomitant]
     Active Substance: CEFEPIME HYDROCHLORIDE
     Dates: start: 20150325, end: 20150328
  3. FINIBAX [Concomitant]
     Active Substance: DORIPENEM MONOHYDRATE
     Dates: start: 20150329, end: 20150331
  4. MEYLON [Concomitant]
     Active Substance: SODIUM BICARBONATE
     Dates: start: 20150331, end: 20150331
  5. CAMPTO [Suspect]
     Active Substance: IRINOTECAN
     Indication: PANCREATIC CARCINOMA
     Dosage: DOSE:260.6 MG/BODY (180 MG/M2),
     Route: 041
     Dates: start: 20150316, end: 20150316
  6. PROEMEND [Concomitant]
     Active Substance: FOSAPREPITANT
     Dates: start: 20150316, end: 20150316
  7. NOVAMIN [Concomitant]
     Active Substance: PROCHLORPERAZINE MALEATE
     Dates: start: 20150304
  8. OPIUM TINCTURE [Concomitant]
     Active Substance: OPIUM TINCTURE
     Dates: start: 20150326
  9. ALBUMIN [Concomitant]
     Active Substance: ALBUMIN (HUMAN)
     Dates: start: 20150328, end: 20150330
  10. VASOPRESSIN. [Concomitant]
     Active Substance: VASOPRESSIN
     Dates: start: 20150331, end: 20150331
  11. LIPITOR [Concomitant]
     Active Substance: ATORVASTATIN CALCIUM
  12. NEXIUM [Concomitant]
     Active Substance: ESOMEPRAZOLE MAGNESIUM
     Dates: start: 20150304
  13. LIXIANA [Concomitant]
     Active Substance: EDOXABAN TOSILATE MONOHYDRATE
     Dates: start: 20150313
  14. MAGLAX [Concomitant]
     Active Substance: MAGNESIUM OXIDE
     Dates: start: 20150304
  15. URSO [Concomitant]
     Active Substance: URSODIOL
     Dates: start: 20150320
  16. LOPERAMIDE [Concomitant]
     Active Substance: LOPERAMIDE
     Dates: start: 20150320
  17. INOVAN [Concomitant]
     Active Substance: DOPAMINE HYDROCHLORIDE
     Dates: start: 20150330, end: 20150331
  18. CALCIUM LEVOFOLINATE [Concomitant]
     Active Substance: LEVOLEUCOVORIN CALCIUM
     Dates: start: 20150316, end: 20150316
  19. 5-FU [Suspect]
     Active Substance: FLUOROURACIL
     Indication: PANCREATIC CARCINOMA
     Dosage: WITHOUT BOLUS
     Route: 065
     Dates: start: 20150316, end: 20150316
  20. OXINORM [Concomitant]
     Active Substance: OXYCODONE HYDROCHLORIDE
     Dates: start: 20150304
  21. BIO-THREE [Concomitant]
     Active Substance: HERBALS
     Dates: start: 20150323
  22. NEUTROGIN [Concomitant]
     Active Substance: LENOGRASTIM
     Dates: start: 20150324, end: 20150331
  23. ELASPOL [Concomitant]
     Active Substance: SIVELESTAT SODIUM
     Dates: start: 20150331, end: 20150331
  24. ALOXI [Concomitant]
     Active Substance: PALONOSETRON HYDROCHLORIDE
     Dates: start: 20150316, end: 20150316
  25. NOREPINEPHRINE [Concomitant]
     Active Substance: NOREPINEPHRINE\NOREPINEPHRINE BITARTRATE
     Dates: start: 20150329, end: 20150331
  26. ELPLAT [Suspect]
     Active Substance: OXALIPLATIN
     Indication: PANCREATIC CARCINOMA
     Dosage: DOSE:(85 MG/M2),
     Route: 041
     Dates: start: 20150316, end: 20150316
  27. DECADRON [Concomitant]
     Active Substance: DEXAMETHASONE
     Dates: start: 20150316, end: 20150316
  28. FOIPAN [Concomitant]
     Active Substance: CAMOSTAT MESYLATE
     Dates: start: 20150310
  29. LOXOPROFEN [Concomitant]
     Active Substance: LOXOPROFEN

REACTIONS (7)
  - Febrile neutropenia [Fatal]
  - Decreased appetite [Not Recovered/Not Resolved]
  - Septic shock [Fatal]
  - Anaemia [Not Recovered/Not Resolved]
  - Hypoalbuminaemia [Not Recovered/Not Resolved]
  - Diarrhoea [Not Recovered/Not Resolved]
  - Platelet count decreased [Not Recovered/Not Resolved]

NARRATIVE: CASE EVENT DATE: 201503
